FAERS Safety Report 9605214 (Version 1)
Quarter: 2013Q4

REPORT INFORMATION
  Report Type: Spontaneous
  Country: AU (occurrence: AU)
  Receive Date: 20131008
  Receipt Date: 20131008
  Transmission Date: 20140711
  Serious: Yes (Other)
  Sender: FDA-Public Use
  Company Number: AU-PFIZER INC-2013284904

PATIENT
  Age: 32 Year
  Sex: Female

DRUGS (7)
  1. DEXAMETHASONE SODIUM PHOSPHATE [Suspect]
     Indication: ADRENOGENITAL SYNDROME
     Dosage: 0.5 MG, IN THE MORNING
     Dates: start: 2010, end: 201102
  2. DEXAMETHASONE SODIUM PHOSPHATE [Suspect]
     Dosage: 0.5 MG IN THE MORNING
     Dates: start: 201206
  3. PREDNISOLONE [Suspect]
     Indication: ADRENOGENITAL SYNDROME
     Dosage: 5 MG IN THE MORNING AND 2.5 MG IN THE EVENING
     Dates: start: 201102
  4. PREDNISOLONE [Suspect]
     Dosage: 2.5 MG IN THE MORNING AND 5 MG IN THE EVENING
     Dates: start: 2011
  5. PREDNISOLONE [Suspect]
     Dosage: 2.5 MG IN THE MORNING AND 7.5 MG IN THE EVENING
     Dates: start: 201202
  6. FLORINEF [Suspect]
     Indication: ADRENOGENITAL SYNDROME
     Dosage: 100 UG, DAILY
     Dates: start: 2010, end: 201102
  7. FLORINEF [Suspect]
     Dosage: 150 UG, DAILY
     Dates: start: 201206

REACTIONS (2)
  - Abortion spontaneous [Unknown]
  - Benign hydatidiform mole [Unknown]
